FAERS Safety Report 12699694 (Version 1)
Quarter: 2016Q3

REPORT INFORMATION
  Report Type: Spontaneous
  Country: US (occurrence: US)
  Receive Date: 20160830
  Receipt Date: 20160830
  Transmission Date: 20161109
  Serious: No
  Sender: FDA-Public Use
  Company Number: US-AMNEAL PHARMACEUTICALS-2016AMN00145

PATIENT
  Sex: Female

DRUGS (1)
  1. SPIRONOLACTONE. [Suspect]
     Active Substance: SPIRONOLACTONE

REACTIONS (6)
  - Nasal discomfort [Unknown]
  - Gluten sensitivity [Unknown]
  - Oral pain [Unknown]
  - Arthralgia [Unknown]
  - Irritability [Unknown]
  - Nasal congestion [Unknown]
